FAERS Safety Report 13801157 (Version 2)
Quarter: 2017Q3

REPORT INFORMATION
  Report Type: Spontaneous
  Country: JP (occurrence: JP)
  Receive Date: 20170727
  Receipt Date: 20170831
  Transmission Date: 20171127
  Serious: Yes (Death, Life-Threatening)
  Sender: FDA-Public Use
  Company Number: JP-GE HEALTHCARE LIFE SCIENCES-2017CSU002252

PATIENT

DRUGS (2)
  1. SALINE                             /00075401/ [Concomitant]
     Active Substance: SODIUM CHLORIDE
     Indication: PREMEDICATION
     Dosage: 250 UNK, UNK
     Dates: start: 20170718, end: 20170718
  2. OMNIPAQUE [Suspect]
     Active Substance: IOHEXOL
     Indication: PRODUCT USED FOR UNKNOWN INDICATION
     Dosage: 111 ML, SINGLE
     Route: 042
     Dates: start: 20170718, end: 20170718

REACTIONS (6)
  - Respiratory arrest [Fatal]
  - Circulatory collapse [Fatal]
  - Laryngeal oedema [Fatal]
  - Anaphylactic shock [Fatal]
  - Pulmonary oedema [Fatal]
  - Pulseless electrical activity [Recovered/Resolved]

NARRATIVE: CASE EVENT DATE: 20170718
